FAERS Safety Report 24325900 (Version 1)
Quarter: 2024Q3

REPORT INFORMATION
  Report Type: Spontaneous
  Country: ES (occurrence: ES)
  Receive Date: 20240917
  Receipt Date: 20240917
  Transmission Date: 20241016
  Serious: Yes (Other)
  Sender: COLLEGIUM PHARMACEUTICAL
  Company Number: None

PATIENT
  Age: 51 Year
  Sex: Male
  Weight: 80 kg

DRUGS (3)
  1. NUCYNTA ER [Suspect]
     Active Substance: TAPENTADOL HYDROCHLORIDE
     Indication: Rib fracture
     Dosage: 1 DOSAGE FORM, BID
     Route: 065
     Dates: start: 20220131, end: 20240405
  2. ESLICARBAZEPINE [Suspect]
     Active Substance: ESLICARBAZEPINE
     Indication: Product used for unknown indication
     Dosage: 800 MILLIGRAM, UNKNOWN
     Route: 065
     Dates: start: 202310
  3. DULOXETINE [Concomitant]
     Active Substance: DULOXETINE
     Indication: Adjustment disorder with anxiety
     Dosage: 90 MILLIGRAM, UNKNOWN
     Route: 065
     Dates: start: 202302

REACTIONS (1)
  - Amnesia [Unknown]

NARRATIVE: CASE EVENT DATE: 20240205
